FAERS Safety Report 9185124 (Version 1)
Quarter: 2012Q4

REPORT INFORMATION
  Report Type: Report from Study
  Country: US (occurrence: US)
  Receive Date: 20121101
  Receipt Date: 20121101
  Transmission Date: 20130627
  Serious: Yes (Hospitalization)
  Sender: FDA-Public Use
  Company Number: US-ABBOTT-12P-163-1001139-00

PATIENT
  Age: 68 None
  Sex: Female
  Weight: 69.01 kg

DRUGS (3)
  1. HUMIRA PRE-FILLED SYRINGE [Suspect]
     Indication: RHEUMATOID ARTHRITIS
     Dosage: every 10 days
     Dates: start: 2006, end: 201203
  2. VANCOMYCIN [Suspect]
     Indication: STAPHYLOCOCCAL INFECTION
     Dates: start: 201203, end: 201205
  3. HYDROXYCHLOROQUINE [Concomitant]
     Indication: RHEUMATOID ARTHRITIS
     Dates: start: 201206

REACTIONS (3)
  - Renal failure [Recovered/Resolved]
  - Staphylococcal infection [Recovered/Resolved]
  - Knee arthroplasty [Recovered/Resolved]
